FAERS Safety Report 6911236-X (Version None)
Quarter: 2010Q3

REPORT INFORMATION
  Report Type: 
  Country: None (occurrence: None)
  Receive Date: 20100806
  Receipt Date: 20100726
  Transmission Date: 20110219
  Serious: Yes (Hospitalization)
  Sender: FDA-Public Use
  Company Number: PHHY2010FR49662

PATIENT
  Sex: Female

DRUGS (6)
  1. VOLTAREN [Suspect]
     Dosage: 100 MG, QD
     Route: 048
     Dates: end: 20100705
  2. TRIMEPRAZINE TAB [Suspect]
     Dosage: ONCE A DAY
     Route: 048
     Dates: end: 20100705
  3. ACETAMINOPHEN W/ PROPOXYPHENE HCL [Suspect]
     Dosage: 2 DF, BID
     Route: 048
     Dates: end: 20100705
  4. ZOCOR [Concomitant]
     Dosage: 20 MG, UNK
     Route: 048
  5. IMOVANE [Concomitant]
  6. PERINDOPRIL ERBUMINE [Concomitant]
     Dosage: 5 MG, UNK
     Route: 048

REACTIONS (12)
  - ANTICHOLINERGIC SYNDROME [None]
  - ANXIETY [None]
  - COGNITIVE DISORDER [None]
  - EXTRAPYRAMIDAL DISORDER [None]
  - GENERAL PHYSICAL HEALTH DETERIORATION [None]
  - HALLUCINATION [None]
  - HYPERHIDROSIS [None]
  - HYPERTONIA [None]
  - INSOMNIA [None]
  - TACHYCARDIA [None]
  - TREMOR [None]
  - WEIGHT DECREASED [None]
